FAERS Safety Report 20574317 (Version 1)
Quarter: 2022Q1

REPORT INFORMATION
  Report Type: Spontaneous
  Country: US (occurrence: US)
  Receive Date: 20220309
  Receipt Date: 20220309
  Transmission Date: 20220424
  Serious: Yes (Other)
  Sender: FDA-Public Use
  Company Number: US-BRISTOL-MYERS SQUIBB COMPANY-BMS-2022-030715

PATIENT
  Age: 70 Year
  Sex: Male
  Weight: 97.522 kg

DRUGS (5)
  1. SPRYCEL [Suspect]
     Active Substance: DASATINIB
     Indication: Chronic myeloid leukaemia
     Dosage: DOSE UNKNOWN, PROBABLY 100 MG
     Route: 048
     Dates: start: 2016
  2. SPRYCEL [Suspect]
     Active Substance: DASATINIB
     Dosage: 100 MILLIGRAM, QD
     Route: 065
     Dates: start: 202107, end: 202201
  3. GLEEVEC [Concomitant]
     Active Substance: IMATINIB MESYLATE
     Indication: Product used for unknown indication
     Dosage: UNK
     Route: 065
     Dates: start: 2016, end: 2021
  4. DIAZEPAM [Concomitant]
     Active Substance: DIAZEPAM
     Indication: Product used for unknown indication
     Dosage: TAKES NO MORE THAN A TOTAL OF 15 MG DAILY, SOMEDAYS HE TAKES NONE
     Route: 065
  5. FAMOTIDINE [Concomitant]
     Active Substance: FAMOTIDINE
     Indication: Gastrooesophageal reflux disease
     Dosage: 40 MG A FEW DAYS PER WEEK, SPREAD OUT FAR FROM HIS DOSE OF SPYRCEL
     Route: 065

REACTIONS (5)
  - Pleural effusion [Recovering/Resolving]
  - Migraine [Unknown]
  - Dyspepsia [Unknown]
  - Constipation [Unknown]
  - Post procedural complication [Unknown]

NARRATIVE: CASE EVENT DATE: 20160101
